FAERS Safety Report 8974295 (Version 1)
Quarter: 2012Q4

REPORT INFORMATION
  Report Type: Spontaneous
  Country: US (occurrence: None)
  Receive Date: 20121212
  Receipt Date: 20121212
  Transmission Date: 20130627
  Serious: Yes (Death)
  Sender: FDA-Public Use
  Company Number: 2012AP004211

PATIENT
  Age: 17 Year
  Sex: Female

DRUGS (2)
  1. LEVETIRACETAM TABLETS 1000MG (LEVETIRACETAM) [Suspect]
     Indication: DRUG USE FOR UNKNOWN INDICATION
  2. NORTRIPTYLINE [Concomitant]

REACTIONS (3)
  - Convulsion [None]
  - Drowning [None]
  - Drug level below therapeutic [None]
